FAERS Safety Report 4866106-8 (Version None)
Quarter: 2005Q4

REPORT INFORMATION
  Report Type: 
  Country: None (occurrence: None)
  Receive Date: 20051221
  Receipt Date: 20051207
  Transmission Date: 20060501
  Serious: Yes (Death)
  Sender: FDA-Public Use
  Company Number: HQWYE894907DEC05

PATIENT
  Age: 90 Year
  Sex: Male

DRUGS (1)
  1. AMIODARONE HCL [Suspect]

REACTIONS (4)
  - ACCIDENTAL OVERDOSE [None]
  - CIRCULATORY COLLAPSE [None]
  - IATROGENIC INJURY [None]
  - MEDICATION ERROR [None]
